FAERS Safety Report 13507902 (Version 1)
Quarter: 2017Q2

REPORT INFORMATION
  Report Type: Spontaneous
  Country: US (occurrence: US)
  Receive Date: 20170503
  Receipt Date: 20170503
  Transmission Date: 20170830
  Serious: No
  Sender: FDA-Public Use
  Company Number: US-PFIZER INC-2017191049

PATIENT
  Sex: Female

DRUGS (1)
  1. XELJANZ [Suspect]
     Active Substance: TOFACITINIB CITRATE
     Dosage: 5 MG, 2X/DAY

REACTIONS (8)
  - Arthralgia [Unknown]
  - Respiratory symptom [Unknown]
  - Nausea [Unknown]
  - Tenderness [Unknown]
  - Cough [Unknown]
  - Fatigue [Unknown]
  - Urinary tract infection [Unknown]
  - Pain in extremity [Unknown]
